FAERS Safety Report 17227971 (Version 1)
Quarter: 2020Q1

REPORT INFORMATION
  Report Type: Spontaneous
  Country: FR (occurrence: FR)
  Receive Date: 20200103
  Receipt Date: 20200103
  Transmission Date: 20200409
  Serious: Yes (Other)
  Sender: FDA-Public Use
  Company Number: FR-GLAXOSMITHKLINE-FR2019236395

PATIENT
  Age: 25 Year
  Sex: Male

DRUGS (4)
  1. ZOPICLONE [Suspect]
     Active Substance: ZOPICLONE
     Indication: SLEEP DISORDER
     Dosage: 7.5 MG, QD
     Route: 048
     Dates: end: 20190417
  2. PRAZEPAM [Suspect]
     Active Substance: PRAZEPAM
     Indication: ANXIETY
     Dosage: 40 MG, QD
     Route: 048
     Dates: end: 20190424
  3. SCOPODERM TTS [Suspect]
     Active Substance: SCOPOLAMINE
     Indication: PROPHYLAXIS
     Dosage: 1 MG, Q3D
     Route: 003
     Dates: end: 20190417
  4. CLOZAPINE. [Suspect]
     Active Substance: CLOZAPINE
     Indication: SCHIZOPHRENIA
     Dosage: 350 MG, QD
     Route: 048
     Dates: end: 20190430

REACTIONS (3)
  - Drug level increased [Recovered/Resolved]
  - Constipation [Recovered/Resolved]
  - Bladder dilatation [Recovered/Resolved]

NARRATIVE: CASE EVENT DATE: 201904
